FAERS Safety Report 8242132-6 (Version None)
Quarter: 2012Q1

REPORT INFORMATION
  Report Type: 
  Country: None (occurrence: None)
  Receive Date: 20120314
  Receipt Date: 20110609
  Transmission Date: 20120608
  Serious: No
  Sender: FDA-Public Use
  Company Number: PHHY2011US51200

PATIENT
  Age: 22 Year
  Sex: Female
  Weight: 133.3 kg

DRUGS (1)
  1. FANAPT [Suspect]
     Dosage: 8 MG, BID, ORAL
     Route: 048
     Dates: start: 20110401, end: 20110420

REACTIONS (2)
  - TENDERNESS [None]
  - SWOLLEN TONGUE [None]
